FAERS Safety Report 15951593 (Version 3)
Quarter: 2019Q2

REPORT INFORMATION
  Report Type: Spontaneous
  Country: US (occurrence: US)
  Receive Date: 20190211
  Receipt Date: 20190408
  Transmission Date: 20190711
  Serious: Yes (Other)
  Sender: FDA-Public Use
  Company Number: US-ASTRAZENECA-2018SF21994

PATIENT
  Age: 17331 Day
  Sex: Male
  Weight: 79.4 kg

DRUGS (24)
  1. LASIX [Concomitant]
     Active Substance: FUROSEMIDE
     Route: 048
  2. PRAVASTATIN. [Concomitant]
     Active Substance: PRAVASTATIN
  3. HYDROCODONE-ACETAMINOPHEN [Concomitant]
     Active Substance: ACETAMINOPHEN\HYDROCODONE
     Route: 048
  4. AMLODIPINE BESYLATE. [Concomitant]
     Active Substance: AMLODIPINE BESYLATE
     Route: 048
  5. PRILOSEC OTC [Suspect]
     Active Substance: OMEPRAZOLE MAGNESIUM
     Indication: GASTROOESOPHAGEAL REFLUX DISEASE
     Route: 048
     Dates: start: 2003, end: 2018
  6. NEXIUM [Suspect]
     Active Substance: ESOMEPRAZOLE MAGNESIUM
     Route: 048
     Dates: start: 2003, end: 2018
  7. PROTONIX [Suspect]
     Active Substance: PANTOPRAZOLE SODIUM
     Route: 065
     Dates: start: 2003, end: 2018
  8. SENSIPAR [Concomitant]
     Active Substance: CINACALCET HYDROCHLORIDE
  9. IMDUR [Concomitant]
     Active Substance: ISOSORBIDE MONONITRATE
     Dosage: 60 MG TABLET EXTENDED RELEASE 24 HR 1 ONCE A DAY
  10. ZYVOX [Concomitant]
     Active Substance: LINEZOLID
     Route: 048
  11. HUMULIN NOS [Concomitant]
     Active Substance: INSULIN HUMAN
     Dosage: 30 UNIT EVERY MORNING
  12. HYDRALAZINE [Concomitant]
     Active Substance: HYDRALAZINE HYDROCHLORIDE
  13. LISINOPRIL. [Concomitant]
     Active Substance: LISINOPRIL
     Route: 048
  14. NAPROXEN. [Concomitant]
     Active Substance: NAPROXEN
     Route: 048
  15. PROTONIX [Suspect]
     Active Substance: PANTOPRAZOLE SODIUM
     Route: 048
     Dates: start: 20161230
  16. GABAPENTIN. [Concomitant]
     Active Substance: GABAPENTIN
     Route: 048
  17. PREVACID 24 HR [Suspect]
     Active Substance: LANSOPRAZOLE
     Route: 065
     Dates: start: 2003, end: 2018
  18. METOPROLOL. [Concomitant]
     Active Substance: METOPROLOL
     Dosage: 25 MG 25 MG 1 TWICE A DAY
  19. PRILOSEC OTC [Suspect]
     Active Substance: OMEPRAZOLE MAGNESIUM
     Indication: GASTROOESOPHAGEAL REFLUX DISEASE
     Route: 048
     Dates: start: 2002, end: 2009
  20. NOVOLOG [Concomitant]
     Active Substance: INSULIN ASPART
  21. CLONIDINE. [Concomitant]
     Active Substance: CLONIDINE
     Dosage: 10 MG TABLET 1 TABLET BY MOUTH ONCE A DAY
  22. NEXIUM [Suspect]
     Active Substance: ESOMEPRAZOLE MAGNESIUM
     Route: 048
     Dates: start: 20140709
  23. PREVACID 24 HR [Suspect]
     Active Substance: LANSOPRAZOLE
     Route: 065
     Dates: start: 2002, end: 2009
  24. AMLODIPINE [Concomitant]
     Active Substance: AMLODIPINE BESYLATE
     Dosage: 10 MG TABLET 1 TABLET BY MOUTH ONCE A DAY

REACTIONS (5)
  - Chronic kidney disease [Not Recovered/Not Resolved]
  - Nephrogenic anaemia [Unknown]
  - Acute kidney injury [Not Recovered/Not Resolved]
  - End stage renal disease [Not Recovered/Not Resolved]
  - Renal failure [Unknown]

NARRATIVE: CASE EVENT DATE: 20140709
